FAERS Safety Report 6182364-4 (Version None)
Quarter: 2009Q2

REPORT INFORMATION
  Report Type: 
  Country: None (occurrence: None)
  Receive Date: 20090507
  Receipt Date: 20090429
  Transmission Date: 20091009
  Serious: Yes (Other)
  Sender: FDA-Public Use
  Company Number: US-JNJFOC-20090500056

PATIENT
  Sex: Male
  Weight: 98.88 kg

DRUGS (3)
  1. TOPAMAX [Suspect]
     Indication: NEUROPATHY PERIPHERAL
     Route: 048
  2. ALL OTHER THERAPEUTIC DRUGS [Concomitant]
     Indication: ARTHRITIS
     Route: 065
  3. ALL OTHER THERAPEUTIC DRUGS [Concomitant]
     Indication: HYPERTENSION
     Route: 065

REACTIONS (3)
  - LIMB DISCOMFORT [None]
  - NEUROPATHY PERIPHERAL [None]
  - PRODUCT COUNTERFEIT [None]
